FAERS Safety Report 6873080-1 (Version None)
Quarter: 2010Q3

REPORT INFORMATION
  Report Type: 
  Country: None (occurrence: None)
  Receive Date: 20100723
  Receipt Date: 20090421
  Transmission Date: 20110219
  Serious: Yes (Other)
  Sender: FDA-Public Use
  Company Number: US-PFIZER INC-2008099747

PATIENT
  Sex: Female
  Weight: 103.86 kg

DRUGS (3)
  1. CHANTIX [Suspect]
     Indication: SMOKING CESSATION THERAPY
     Route: 048
     Dates: start: 20081014, end: 20081024
  2. CHOLESTEROL- AND TRIGLYCERIDE REDUCERS [Concomitant]
  3. ANTIHYPERTENSIVES [Concomitant]

REACTIONS (5)
  - ANXIETY [None]
  - PSYCHIATRIC SYMPTOM [None]
  - STRESS [None]
  - SUICIDAL IDEATION [None]
  - TOBACCO USER [None]
